FAERS Safety Report 9970090 (Version 1)
Quarter: 2014Q1

REPORT INFORMATION
  Report Type: Spontaneous
  Country: US (occurrence: None)
  Receive Date: 20140131
  Receipt Date: 20140131
  Transmission Date: 20141002
  Serious: Yes (Hospitalization)
  Sender: FDA-Public Use
  Company Number: 076850

PATIENT
  Age: 43 Year
  Sex: Male

DRUGS (11)
  1. KEPPRA [Suspect]
     Route: 048
     Dates: start: 20110322
  2. AMOXICILLIN [Concomitant]
  3. CELEXA /00582602/ [Concomitant]
  4. EXCEDRIN EXTRA STRENGTH [Concomitant]
  5. FENOFIBRATE [Concomitant]
  6. LISINOPRIL [Concomitant]
  7. TRICOR /00499301/ [Concomitant]
  8. ASPIRIN /00002701/ [Concomitant]
  9. FISH OIL [Concomitant]
  10. METOPROLOL [Concomitant]
  11. VITAMIN D3 [Concomitant]

REACTIONS (2)
  - Convulsion [None]
  - Inappropriate schedule of drug administration [None]
